FAERS Safety Report 17901501 (Version 2)
Quarter: 2020Q2

REPORT INFORMATION
  Report Type: Spontaneous
  Country: IT (occurrence: IT)
  Receive Date: 20200616
  Receipt Date: 20200623
  Transmission Date: 20200714
  Serious: Yes (Other)
  Sender: FDA-Public Use
  Company Number: NVSC2020IT164587

PATIENT
  Age: 38 Year
  Sex: Male

DRUGS (2)
  1. OKI [Suspect]
     Active Substance: KETOPROFEN LYSINE
     Indication: BACK PAIN
     Dosage: 1 DF, PRN
     Route: 048
  2. IBUPROFEN. [Suspect]
     Active Substance: IBUPROFEN
     Indication: BACK PAIN
     Dosage: 1 DF, PRN
     Route: 048

REACTIONS (2)
  - Anosmia [Unknown]
  - Ageusia [Unknown]

NARRATIVE: CASE EVENT DATE: 20200110
